FAERS Safety Report 14383330 (Version 3)
Quarter: 2018Q1

REPORT INFORMATION
  Report Type: Spontaneous
  Country: US (occurrence: US)
  Receive Date: 20180115
  Receipt Date: 20180321
  Transmission Date: 20180509
  Serious: Yes (Hospitalization, Other)
  Sender: FDA-Public Use
  Company Number: US-BEH-2018086638

PATIENT
  Sex: Female
  Weight: 87.53 kg

DRUGS (38)
  1. HIZENTRA [Suspect]
     Active Substance: HUMAN IMMUNOGLOBULIN G
     Dosage: UNK
     Route: 058
  2. VITAMIN E                          /00110501/ [Concomitant]
     Active Substance: TOCOPHEROL
  3. PROBIOTIC                          /06395501/ [Concomitant]
     Active Substance: BIFIDOBACTERIUM ANIMALIS LACTIS
  4. COLCHICINE. [Concomitant]
     Active Substance: COLCHICINE
  5. AMITIZA [Concomitant]
     Active Substance: LUBIPROSTONE
  6. EPINEPHRINE. [Concomitant]
     Active Substance: EPINEPHRINE
  7. LEVOTHYROXINE. [Concomitant]
     Active Substance: LEVOTHYROXINE
  8. VOLTAREN [Concomitant]
     Active Substance: DICLOFENAC SODIUM
  9. DIPHENHYDRAMINE. [Concomitant]
     Active Substance: DIPHENHYDRAMINE
  10. NEXIUM [Concomitant]
     Active Substance: ESOMEPRAZOLE MAGNESIUM
  11. ALLOPURINOL. [Concomitant]
     Active Substance: ALLOPURINOL
  12. ZOLPIDEM [Concomitant]
     Active Substance: ZOLPIDEM\ZOLPIDEM TARTRATE
  13. ESTRACE [Concomitant]
     Active Substance: ESTRADIOL
  14. IPRATROPIUM [Concomitant]
     Active Substance: IPRATROPIUM
  15. SIMVASTATIN. [Concomitant]
     Active Substance: SIMVASTATIN
  16. FLONASE [Concomitant]
     Active Substance: FLUTICASONE PROPIONATE
  17. VITAMIN C [Concomitant]
     Active Substance: ASCORBIC ACID
  18. FLUTICASONE. [Concomitant]
     Active Substance: FLUTICASONE
  19. LMX                                /00033401/ [Concomitant]
  20. POLYETHYLENE GLYCOL [Concomitant]
     Active Substance: POLYETHYLENE GLYCOLS
  21. SINGULAIR [Concomitant]
     Active Substance: MONTELUKAST SODIUM
  22. PREDNISONE. [Concomitant]
     Active Substance: PREDNISONE
  23. VENTOLIN [Concomitant]
     Active Substance: ALBUTEROL SULFATE
  24. OXYCODONE W/APAP [Concomitant]
     Active Substance: ACETAMINOPHEN\OXYCODONE HYDROCHLORIDE
  25. NYSTATIN. [Concomitant]
     Active Substance: NYSTATIN
  26. LIDOCAINE. [Concomitant]
     Active Substance: LIDOCAINE
  27. PLAQUENIL                          /00072602/ [Concomitant]
     Active Substance: HYDROXYCHLOROQUINE DIPHOSPHATE
  28. BENTYL [Concomitant]
     Active Substance: DICYCLOMINE HYDROCHLORIDE
  29. XANAX [Concomitant]
     Active Substance: ALPRAZOLAM
  30. VITAMIN D3 [Concomitant]
     Active Substance: CHOLECALCIFEROL
  31. POTASSIUM                          /00031402/ [Concomitant]
     Active Substance: POTASSIUM
  32. ACETAMINOPHEN. [Concomitant]
     Active Substance: ACETAMINOPHEN
  33. HIZENTRA [Suspect]
     Active Substance: HUMAN IMMUNOGLOBULIN G
     Indication: HYPOGAMMAGLOBULINAEMIA
     Dosage: 16 G, QW
     Route: 058
     Dates: start: 20171215
  34. HIZENTRA [Suspect]
     Active Substance: HUMAN IMMUNOGLOBULIN G
     Dosage: UNK
     Route: 058
  35. ZOFRAN [Concomitant]
     Active Substance: ONDANSETRON HYDROCHLORIDE
  36. MAXZIDE [Concomitant]
     Active Substance: HYDROCHLOROTHIAZIDE\TRIAMTERENE
  37. ZYRTEC [Concomitant]
     Active Substance: CETIRIZINE HYDROCHLORIDE
  38. MORPHINE [Concomitant]
     Active Substance: MORPHINE

REACTIONS (3)
  - Malignant melanoma [Unknown]
  - Neoplasm malignant [Unknown]
  - Adult T-cell lymphoma/leukaemia [Unknown]
